FAERS Safety Report 4591013-8 (Version None)
Quarter: 2005Q1

REPORT INFORMATION
  Report Type: 
  Country: None (occurrence: None)
  Receive Date: 20050222
  Receipt Date: 20050222
  Transmission Date: 20050727
  Serious: Yes (Other)
  Sender: FDA-Public Use
  Company Number: None

PATIENT
  Age: 49 Year
  Sex: Female
  Weight: 68.0396 kg

DRUGS (2)
  1. PILOCARPINE 5 MG [Suspect]
     Indication: FIBROMYALGIA
     Dosage: 5-10 MG PO QID
     Route: 048
     Dates: start: 20041201
  2. PILOCARPINE 5 MG [Suspect]
     Indication: TRAUMATIC BRAIN INJURY
     Dosage: 5-10 MG PO QID
     Route: 048
     Dates: start: 20041201

REACTIONS (3)
  - DRUG INEFFECTIVE [None]
  - NAUSEA [None]
  - PHARMACEUTICAL PRODUCT COMPLAINT [None]
